FAERS Safety Report 14968303 (Version 1)
Quarter: 2018Q2

REPORT INFORMATION
  Report Type: Spontaneous
  Country: DE (occurrence: DE)
  Receive Date: 20180604
  Receipt Date: 20180604
  Transmission Date: 20180711
  Serious: Yes (Hospitalization, Other)
  Sender: FDA-Public Use
  Company Number: DE-ACCORD-046088

PATIENT
  Age: 39 Year
  Sex: Female

DRUGS (3)
  1. QUETIAPINE. [Suspect]
     Active Substance: QUETIAPINE
     Indication: MENTAL DISORDER
     Dosage: 75 MG FROM 8-JAN-16,100 MG FROM 9-JAN-16 TO 18-JAN-16, 125 MG FROM 19-JAN-16 TO 24-JAN-16,200 MG
     Route: 048
     Dates: start: 20160107, end: 20160107
  2. ARIPIPRAZOLE. [Suspect]
     Active Substance: ARIPIPRAZOLE
     Indication: MENTAL DISORDER
     Dosage: RECEIVED 10 MG FROM 07-JAN-2016 TO 20-JAN-2016 AND THEN 5 MG FROM 21-JAN-2016
     Route: 048
     Dates: start: 20160103, end: 20160106
  3. ABILIFY [Suspect]
     Active Substance: ARIPIPRAZOLE
     Indication: MENTAL DISORDER
     Dosage: 5 MG FROM 21-JAN-2016
     Route: 065

REACTIONS (4)
  - Treatment noncompliance [Unknown]
  - Dyskinesia [Recovered/Resolved]
  - Bruxism [Unknown]
  - Urinary incontinence [Unknown]

NARRATIVE: CASE EVENT DATE: 20160120
